FAERS Safety Report 7444542-3 (Version None)
Quarter: 2011Q2

REPORT INFORMATION
  Report Type: 
  Country: None (occurrence: None)
  Receive Date: 20110429
  Receipt Date: 20110414
  Transmission Date: 20111010
  Serious: Yes (Hospitalization, Other)
  Sender: FDA-Public Use
  Company Number: SK-CELGENEUS-260-21880-11041936

PATIENT
  Sex: Female

DRUGS (6)
  1. WARFARIN [Concomitant]
     Indication: THROMBOSIS PROPHYLAXIS
     Route: 048
  2. DEXAMETHASONE [Concomitant]
     Route: 065
  3. REVLIMID [Suspect]
     Indication: MULTIPLE MYELOMA
     Route: 048
  4. CALTRATE [Concomitant]
     Route: 065
  5. BISPHOSPHONATES [Concomitant]
     Route: 065
  6. NOLIPREL [Concomitant]
     Indication: HYPERTENSION
     Route: 065

REACTIONS (1)
  - PULMONARY FIBROSIS [None]
